FAERS Safety Report 14707921 (Version 3)
Quarter: 2019Q2

REPORT INFORMATION
  Report Type: Spontaneous
  Country: US (occurrence: US)
  Receive Date: 20180403
  Receipt Date: 20190415
  Transmission Date: 20190711
  Serious: No
  Sender: FDA-Public Use
  Company Number: US-PFIZER INC-2018132566

PATIENT
  Age: 81 Year
  Sex: Female
  Weight: 70.31 kg

DRUGS (4)
  1. METFORMIN [Concomitant]
     Active Substance: METFORMIN HYDROCHLORIDE
     Indication: DIABETES MELLITUS
     Dosage: 500 MG, 1X/DAY (500MG, TABLET, ORALLY, ONCE A DAY)
     Route: 048
     Dates: end: 2018
  2. LYRICA [Suspect]
     Active Substance: PREGABALIN
     Dosage: 100 MG, UNK
  3. VALSARTAN. [Concomitant]
     Active Substance: VALSARTAN
     Indication: DIABETES MELLITUS
     Dosage: 320 MG, 1X/DAY (TABLET, 320 MG, BY MOUTH, ONCE A DAY)
     Route: 048
  4. LYRICA [Suspect]
     Active Substance: PREGABALIN
     Indication: ARTHRITIS
     Dosage: 75 MG, 3X/DAY
     Route: 048

REACTIONS (1)
  - Drug ineffective for unapproved indication [Recovered/Resolved]

NARRATIVE: CASE EVENT DATE: 2018
